FAERS Safety Report 18847695 (Version 2)
Quarter: 2021Q2

REPORT INFORMATION
  Report Type: Report from Study
  Country: US (occurrence: US)
  Receive Date: 20210204
  Receipt Date: 20210407
  Transmission Date: 20210717
  Serious: Yes (Hospitalization, Other)
  Sender: FDA-Public Use
  Company Number: US-SHIRE-US201938724AA

PATIENT
  Age: 75 Year
  Sex: Female

DRUGS (31)
  1. TOPIRAMATE. [Concomitant]
     Active Substance: TOPIRAMATE
  2. FIORINAL [ACETYLSALICYLIC ACID;BUTALBITAL;CAFFEINE;PHENACETIN] [Concomitant]
     Active Substance: ASPIRIN\BUTALBITAL\CAFFEINE\PHENACETIN
  3. ERYTHROMYCIN. [Concomitant]
     Active Substance: ERYTHROMYCIN
  4. GABAPENTIN. [Concomitant]
     Active Substance: GABAPENTIN
  5. AMITRIPTYLINE [Concomitant]
     Active Substance: AMITRIPTYLINE
  6. PROTONIX [OMEPRAZOLE] [Concomitant]
     Active Substance: OMEPRAZOLE
  7. EVISTA [Concomitant]
     Active Substance: RALOXIFENE HYDROCHLORIDE
  8. PROVENTIL HFA [Concomitant]
     Active Substance: ALBUTEROL SULFATE
  9. BENZONATATE. [Concomitant]
     Active Substance: BENZONATATE
  10. ZYRTEC [Concomitant]
     Active Substance: CETIRIZINE HYDROCHLORIDE
  11. FLONASE [MOMETASONE FUROATE] [Concomitant]
     Active Substance: MOMETASONE FUROATE
  12. CYCLOBENZAPRINE. [Concomitant]
     Active Substance: CYCLOBENZAPRINE
  13. DIPHENHYDRAMINE. [Concomitant]
     Active Substance: DIPHENHYDRAMINE
  14. NEXIUM I.V. [Concomitant]
     Active Substance: ESOMEPRAZOLE SODIUM
  15. PROTOPIC [Concomitant]
     Active Substance: TACROLIMUS
  16. VITAMIN D2 [Concomitant]
     Active Substance: ERGOCALCIFEROL
  17. LIDOCAINE ACCORD [Concomitant]
  18. EPINEPHRINE. [Concomitant]
     Active Substance: EPINEPHRINE
  19. AUGMENTIN [Concomitant]
     Active Substance: AMOXICILLIN\CLAVULANATE POTASSIUM
  20. SINGULAIR [Concomitant]
     Active Substance: MONTELUKAST SODIUM
  21. CALCIUM [Concomitant]
     Active Substance: CALCIUM
  22. CUVITRU [Suspect]
     Active Substance: HUMAN IMMUNOGLOBULIN G
     Dosage: 20 GRAM, 1X/2WKS
     Route: 058
     Dates: start: 20180209
  23. LYRICA [Concomitant]
     Active Substance: PREGABALIN
  24. LOTEMAX [Concomitant]
     Active Substance: LOTEPREDNOL ETABONATE
  25. CALCITONIN?SALMON [Concomitant]
     Active Substance: CALCITONIN SALMON
  26. DESOXIMETASONE. [Concomitant]
     Active Substance: DESOXIMETASONE
  27. CUVITRU [Suspect]
     Active Substance: HUMAN IMMUNOGLOBULIN G
     Indication: IMMUNODEFICIENCY COMMON VARIABLE
     Dosage: 20 GRAM, 1X/2WKS
     Route: 065
  28. ACETAMINOPHEN. [Concomitant]
     Active Substance: ACETAMINOPHEN
  29. DOXYCYCLINE. [Concomitant]
     Active Substance: DOXYCYCLINE
  30. ESTRADIOL. [Concomitant]
     Active Substance: ESTRADIOL
  31. MULTIVITAMINS [VITAMINS NOS] [Concomitant]
     Active Substance: VITAMINS

REACTIONS (8)
  - Pelvic fracture [Recovering/Resolving]
  - Injury [Recovering/Resolving]
  - Back pain [Not Recovered/Not Resolved]
  - Multiple fractures [Unknown]
  - Fall [Recovering/Resolving]
  - Rib fracture [Recovering/Resolving]
  - Cellulitis [Unknown]
  - Neck pain [Not Recovered/Not Resolved]

NARRATIVE: CASE EVENT DATE: 20190906
